FAERS Safety Report 11338659 (Version 1)
Quarter: 2015Q3

REPORT INFORMATION
  Report Type: Spontaneous
  Country: US (occurrence: US)
  Receive Date: 20150803
  Receipt Date: 20150803
  Transmission Date: 20151125
  Serious: No
  Sender: FDA-Public Use
  Company Number: US-ELI_LILLY_AND_COMPANY-US200801004467

PATIENT
  Age: 33 Year
  Sex: Female

DRUGS (2)
  1. STRATTERA [Suspect]
     Active Substance: ATOMOXETINE HYDROCHLORIDE
     Dosage: 18 MG, UNK
     Dates: start: 20080107, end: 20080113
  2. STRATTERA [Suspect]
     Active Substance: ATOMOXETINE HYDROCHLORIDE
     Dosage: 25 MG, UNK
     Dates: start: 20080214

REACTIONS (4)
  - Dry mouth [Unknown]
  - Sensory disturbance [Unknown]
  - Insomnia [Unknown]
  - Pollakiuria [Unknown]

NARRATIVE: CASE EVENT DATE: 200801
